FAERS Safety Report 4465072-7 (Version None)
Quarter: 2004Q3

REPORT INFORMATION
  Report Type: 
  Country: None (occurrence: None)
  Receive Date: 20040928
  Receipt Date: 20040928
  Transmission Date: 20050211
  Serious: Yes (Hospitalization)
  Sender: FDA-Public Use
  Company Number: None

PATIENT
  Sex: Male
  Weight: 40.8237 kg

DRUGS (4)
  1. ZOLOFT [Suspect]
     Indication: ANXIETY
     Dosage: 25MG DAILY ORAL
     Route: 048
     Dates: start: 20040807, end: 20040811
  2. ZOLOFT [Suspect]
     Dosage: 50MG DAILY ORAL
     Route: 048
     Dates: start: 20040812, end: 20040826
  3. CLONAZEPAM [Concomitant]
  4. TRAZODONE HCL [Concomitant]

REACTIONS (3)
  - DELUSION [None]
  - MANIA [None]
  - THINKING ABNORMAL [None]
